FAERS Safety Report 17041767 (Version 1)
Quarter: 2019Q4

REPORT INFORMATION
  Report Type: Spontaneous
  Country: US (occurrence: US)
  Receive Date: 20191016
  Receipt Date: 20191016
  Transmission Date: 20200122
  Serious: No
  Sender: FDA-Public Use
  Company Number: None

PATIENT
  Age: 64 Year
  Sex: Female

DRUGS (35)
  1. NITROFURNTIN 100MG CAP( [Concomitant]
  2. TERCONAZOLE CRE 0.4% [Concomitant]
  3. URSODIOL 300MG CAP [Concomitant]
  4. FUROSEMIDE 20 MG TAB [Concomitant]
  5. PAZEO DRO 0.7% (3 [Concomitant]
  6. CEPHALEXIN 500MG CAP [Concomitant]
  7. ESOMEPRA MAG 40MG DR CA [Concomitant]
  8. GABAPENTIN. [Concomitant]
     Active Substance: GABAPENTIN
  9. ARNUITY ELPT INH 100MCG [Concomitant]
  10. POT CHLORIDE 10 MEQ ER TAB [Concomitant]
  11. MECLIZINE 12.5MG TAB [Concomitant]
  12. PREDNISONE 5MG [Concomitant]
     Active Substance: PREDNISONE
  13. VALACYCLOVIR 1GM TAB [Concomitant]
  14. PREDNISOLONE SUS 1% OP [Concomitant]
  15. APAP/CODEINE 300-30MG TAB [Concomitant]
  16. METRONIZADOLE 500MG TA [Concomitant]
  17. HYDROXYCHOLR TAB 200MG [Concomitant]
  18. ONDANSETRON 4MG TAB [Concomitant]
  19. LEVOTHYROXINE. [Concomitant]
     Active Substance: LEVOTHYROXINE
  20. CIPROFLOXCIN 500MG TAB [Concomitant]
  21. KETOROLAC SOL 0.5% [Concomitant]
  22. PAROXETINE 20MG [Concomitant]
     Active Substance: PAROXETINE
  23. ZITHROMYCIN 250MG TAB [Concomitant]
  24. MOTELUKAST 10MG TAB [Concomitant]
  25. ACYCLOVIR OIN 5% [Concomitant]
  26. ALBUTEROL AER HFA [Concomitant]
  27. IBUPROFEN 600MG TAB [Concomitant]
  28. TRIAM/HCZ 37.5-25 TAB [Concomitant]
  29. KETOCONAZOLE CRE 2% [Concomitant]
  30. TRIAMCINOLON OIN 0.1% [Concomitant]
  31. GATIFLOXACIN SOL 0.5%(10/15/2019) [Concomitant]
  32. ALPRAZOLAM 0.5MG TAB [Concomitant]
  33. FLUTICASONE SPR 50MCG [Concomitant]
     Active Substance: FLUTICASONE
  34. BACLOFEN 5MG TAB [Concomitant]
  35. OCALIVA [Suspect]
     Active Substance: OBETICHOLIC ACID
     Indication: PRODUCT USED FOR UNKNOWN INDICATION
     Route: 048
     Dates: start: 20190211, end: 20191015

REACTIONS (1)
  - Pruritus [None]

NARRATIVE: CASE EVENT DATE: 20191015
